FAERS Safety Report 6507336-9 (Version None)
Quarter: 2009Q4

REPORT INFORMATION
  Report Type: 
  Country: None (occurrence: None)
  Receive Date: 20091221
  Receipt Date: 20091218
  Transmission Date: 20100525
  Serious: Yes (Hospitalization, Other)
  Sender: FDA-Public Use
  Company Number: PHHO2008SG12264

PATIENT
  Sex: Male
  Weight: 62 kg

DRUGS (8)
  1. STARLIX [Suspect]
     Dosage: LEVEL 1
     Route: 048
     Dates: start: 20021114
  2. STARLIX [Suspect]
     Dosage: LEVEL 2
     Route: 048
     Dates: end: 20081120
  3. PLACEBO PLACEBO [Suspect]
     Indication: CARDIOVASCULAR DISORDER
     Dosage: LEVEL 1
     Route: 048
     Dates: start: 20021114
  4. PLACEBO PLACEBO [Suspect]
     Dosage: LEVEL 2
     Route: 048
     Dates: end: 20081120
  5. OXYBUTYNIN CHLORIDE [Suspect]
     Dosage: 2.5 MG, TID
  6. OXYBUTYNIN CHLORIDE [Suspect]
     Dosage: 5 MG, TID
  7. ALFUZOSIN HCL [Concomitant]
     Dosage: UNK
  8. ACETYLSALICYLIC ACID [Concomitant]
     Dosage: UNK

REACTIONS (22)
  - ATELECTASIS [None]
  - BLADDER CATHETERISATION [None]
  - BREATH SOUNDS ABNORMAL [None]
  - DECREASED APPETITE [None]
  - DIZZINESS [None]
  - INCREASED BRONCHIAL SECRETION [None]
  - LUNG CONSOLIDATION [None]
  - LYMPHADENOPATHY [None]
  - MALAISE [None]
  - METASTASES TO LYMPH NODES [None]
  - NIGHT SWEATS [None]
  - NON-SMALL CELL LUNG CANCER [None]
  - PALMAR ERYTHEMA [None]
  - PLEURAL EFFUSION [None]
  - POSTURE ABNORMAL [None]
  - PRODUCTIVE COUGH [None]
  - TINNITUS [None]
  - TONGUE DRY [None]
  - TRACHEAL DEVIATION [None]
  - URINARY RETENTION [None]
  - VERTIGO [None]
  - VOMITING [None]
